FAERS Safety Report 22883939 (Version 5)
Quarter: 2023Q4

REPORT INFORMATION
  Report Type: Spontaneous
  Country: AU (occurrence: AU)
  Receive Date: 20230830
  Receipt Date: 20231107
  Transmission Date: 20240110
  Serious: No
  Sender: FDA-Public Use
  Company Number: AU-PFIZER INC-202300285706

PATIENT
  Sex: Male

DRUGS (1)
  1. CAVERJECT IMPULSE [Suspect]
     Active Substance: ALPROSTADIL
     Dosage: UNK

REACTIONS (4)
  - Injection site haemorrhage [Unknown]
  - Therapeutic product effect incomplete [Unknown]
  - Device use issue [Unknown]
  - Incorrect dose administered [Unknown]
